FAERS Safety Report 5273993-0 (Version None)
Quarter: 2007Q1

REPORT INFORMATION
  Report Type: 
  Country: None (occurrence: None)
  Receive Date: 20070323
  Receipt Date: 20070316
  Transmission Date: 20070707
  Serious: Yes (Hospitalization, Other)
  Sender: FDA-Public Use
  Company Number: JP-GLAXOSMITHKLINE-B0460283A

PATIENT
  Age: 78 Year
  Sex: Male
  Weight: 75 kg

DRUGS (17)
  1. MODACIN [Suspect]
     Indication: PNEUMONIA
     Dosage: 2G TWICE PER DAY
     Route: 042
     Dates: start: 20070215, end: 20070227
  2. RENIVACE [Concomitant]
     Route: 048
  3. ARTIST [Concomitant]
     Route: 048
  4. ALLOPURINOL [Concomitant]
     Route: 048
     Dates: start: 20070227
  5. ASPIRIN [Concomitant]
     Route: 048
     Dates: start: 20070228
  6. CONIEL [Concomitant]
     Route: 048
  7. SINGULAIR [Concomitant]
     Route: 048
     Dates: start: 20070227
  8. PARIET [Concomitant]
     Route: 048
     Dates: start: 20070227
  9. MUCOSOLVAN [Concomitant]
     Route: 048
     Dates: start: 20070227
  10. BISOLVON [Concomitant]
     Dosage: 12MG PER DAY
     Route: 048
     Dates: start: 20070227
  11. SPIRIVA [Concomitant]
     Route: 055
  12. HARNAL [Concomitant]
     Route: 048
     Dates: start: 20070227
  13. CINBERAMIN [Concomitant]
     Dosage: .25MG PER DAY
     Route: 048
     Dates: start: 20070222
  14. LIPITOR [Concomitant]
     Dosage: 10MG PER DAY
     Route: 048
     Dates: start: 20070227
  15. IPD [Concomitant]
     Dosage: 200MG PER DAY
     Route: 048
     Dates: start: 20070227
  16. COLDRIN [Concomitant]
     Dosage: 50MG PER DAY
     Route: 048
     Dates: start: 20070227
  17. VIDARABINE [Concomitant]
     Route: 062
     Dates: start: 20070217, end: 20070220

REACTIONS (6)
  - ABDOMINAL PAIN UPPER [None]
  - ASCITES [None]
  - CONSTIPATION [None]
  - DIARRHOEA [None]
  - ILEUS PARALYTIC [None]
  - INTESTINAL DILATATION [None]
